FAERS Safety Report 7723188-3 (Version None)
Quarter: 2011Q3

REPORT INFORMATION
  Report Type: 
  Country: None (occurrence: None)
  Receive Date: 20110901
  Receipt Date: 20110825
  Transmission Date: 20111222
  Serious: Yes (Death, Hospitalization)
  Sender: FDA-Public Use
  Company Number: US-AMGEN-USASP2011041708

PATIENT

DRUGS (2)
  1. XGEVA [Suspect]
     Indication: METASTASES TO BONE
     Dates: start: 20110101
  2. CALCIUM CARBONATE [Concomitant]

REACTIONS (2)
  - HOSPITALISATION [None]
  - HYPOCALCAEMIA [None]
